FAERS Safety Report 11159595 (Version 1)
Quarter: 2015Q2

REPORT INFORMATION
  Report Type: Spontaneous
  Country: US (occurrence: None)
  Receive Date: 20150602
  Receipt Date: 20150602
  Transmission Date: 20150821
  Serious: No
  Sender: FDA-Public Use
  Company Number: None

PATIENT
  Age: 17 Year
  Sex: Male
  Weight: 63.5 kg

DRUGS (4)
  1. AMBIEN [Concomitant]
     Active Substance: ZOLPIDEM TARTRATE
  2. AZITHROMYCIN [Suspect]
     Active Substance: AZITHROMYCIN ANHYDROUS
     Indication: PHARYNGITIS STREPTOCOCCAL
     Dosage: 2 ON 1ST DAY; 1/DAY FOR 4 DAYS
     Route: 048
     Dates: start: 20150526, end: 20150531
  3. IBUPROFEN. [Concomitant]
     Active Substance: IBUPROFEN
  4. EXCEDRIN MIGRAINE [Concomitant]
     Active Substance: ACETAMINOPHEN\ASPIRIN\CAFFEINE

REACTIONS (1)
  - Headache [None]

NARRATIVE: CASE EVENT DATE: 20150601
